FAERS Safety Report 20447590 (Version 1)
Quarter: 2022Q1

REPORT INFORMATION
  Report Type: Report from Study
  Country: US (occurrence: US)
  Receive Date: 20220209
  Receipt Date: 20220209
  Transmission Date: 20220423
  Serious: Yes (Hospitalization, Other)
  Sender: FDA-Public Use
  Company Number: US-HRARD-202000929

PATIENT
  Age: 38 Year
  Sex: Female

DRUGS (4)
  1. LYSODREN [Suspect]
     Active Substance: MITOTANE
     Dosage: UNSPECIFIED DAILY DOSE(S)
     Route: 048
     Dates: start: 20190619
  2. LYSODREN [Suspect]
     Active Substance: MITOTANE
     Dosage: AS OF 02 NOV 2020: 1000 MG 4 TIMES A DAY, ONGOING
     Route: 048
     Dates: start: 20201102
  3. LYSODREN [Suspect]
     Active Substance: MITOTANE
     Dosage: 07 TABLETS DAILY
     Route: 048
     Dates: start: 20201030
  4. CIPROFLOXACIN [Concomitant]
     Active Substance: CIPROFLOXACIN

REACTIONS (3)
  - Adrenocortical insufficiency acute [Unknown]
  - Fatigue [Not Recovered/Not Resolved]
  - Nausea [Not Recovered/Not Resolved]

NARRATIVE: CASE EVENT DATE: 20210322
